FAERS Safety Report 19504830 (Version 1)
Quarter: 2021Q3

REPORT INFORMATION
  Report Type: Spontaneous
  Country: FR (occurrence: FR)
  Receive Date: 20210707
  Receipt Date: 20210707
  Transmission Date: 20211014
  Serious: Yes (Hospitalization)
  Sender: FDA-Public Use
  Company Number: FR-SA-2021SA221977

PATIENT
  Age: 74 Year
  Weight: 89 kg

DRUGS (1)
  1. RIFADINE [Suspect]
     Active Substance: RIFAMPIN
     Indication: MEDIASTINITIS
     Dosage: 30 MG / KG / DAY
     Route: 048
     Dates: start: 20210401, end: 20210416

REACTIONS (1)
  - Jaundice [Recovered/Resolved]
